FAERS Safety Report 7074375-1 (Version None)
Quarter: 2010Q4

REPORT INFORMATION
  Report Type: 
  Country: None (occurrence: None)
  Receive Date: 20101029
  Receipt Date: 20101019
  Transmission Date: 20110411
  Serious: Yes (Other)
  Sender: FDA-Public Use
  Company Number: GB-AMGEN-GBRCT2010000274

PATIENT

DRUGS (15)
  1. ETANERCEPT [Suspect]
     Indication: RHEUMATOID ARTHRITIS
     Route: 058
     Dates: start: 20040805
  2. SULPHASALAZINE [Concomitant]
     Dosage: UNKNOWN
  3. ASPIRIN [Concomitant]
     Dosage: UNKNOWN
  4. BISOPROLOL [Concomitant]
     Dosage: UNKNOWN
  5. CELECOXIB [Concomitant]
     Dosage: UNKNOWN
  6. CO-CODAMOL [Concomitant]
     Dosage: UNKNOWN
  7. CORACTEN [Concomitant]
     Dosage: UNKNOWN
  8. FOLIC ACID [Concomitant]
     Dosage: UNKNOWN
  9. GAVISCON [Concomitant]
     Dosage: UNKNOWN
  10. PERINDOPRIL [Concomitant]
     Dosage: UNKNOWN
  11. PRAZOSIN HCL [Concomitant]
     Dosage: UNKNOWN
  12. ACIPHEX [Concomitant]
     Dosage: UNKNOWN
  13. SALBUTAMOL [Concomitant]
     Dosage: UNKNOWN
  14. TELMISARTAN [Concomitant]
     Dosage: UNKNOWN
  15. METHOTREXATE [Concomitant]
     Dosage: UNKNOWN
     Dates: start: 20040805

REACTIONS (1)
  - LUNG NEOPLASM [None]
